FAERS Safety Report 4491905-4 (Version None)
Quarter: 2004Q4

REPORT INFORMATION
  Report Type: 
  Country: None (occurrence: None)
  Receive Date: 20041101
  Receipt Date: 20041026
  Transmission Date: 20050328
  Serious: Yes (Death, Hospitalization)
  Sender: FDA-Public Use
  Company Number: 2004-10-0371

PATIENT
  Age: 51 Year
  Sex: Male
  Weight: 97.5234 kg

DRUGS (6)
  1. PEG-INTRON [Suspect]
     Indication: HEPATITIS C
     Dosage: 150 MCG QWK SUBCUTANEOUS
     Route: 058
     Dates: start: 20040810
  2. RIBAVIRIN [Suspect]
     Indication: HEPATITIS C
     Dosage: 600 MG BID ORAL
     Route: 048
     Dates: start: 20040810
  3. PEGASYS [Suspect]
     Indication: HEPATITIS C
  4. ACYCLOVIR [Concomitant]
  5. HYDROXYZINE HYDROCHLORIDE TABLETS [Concomitant]
  6. OXAZEPAM [Concomitant]

REACTIONS (1)
  - PERICARDITIS [None]
